FAERS Safety Report 4821200-2 (Version None)
Quarter: 2005Q4

REPORT INFORMATION
  Report Type: 
  Country: None (occurrence: None)
  Receive Date: 20051102
  Receipt Date: 20051017
  Transmission Date: 20060501
  Serious: Yes (Other)
  Sender: FDA-Public Use
  Company Number: USA0510111039

PATIENT
  Age: 51 Year
  Sex: Female

DRUGS (2)
  1. CYMBALTA [Suspect]
     Indication: DEPRESSION
     Dosage: 120  MG DAY
     Dates: start: 20050622, end: 20050818
  2. EFFEXOR [Concomitant]

REACTIONS (8)
  - BLINDNESS [None]
  - CRYING [None]
  - EYE SWELLING [None]
  - FEAR [None]
  - MALAISE [None]
  - VISION BLURRED [None]
  - VISUAL ACUITY REDUCED [None]
  - VISUAL DISTURBANCE [None]
